FAERS Safety Report 9591269 (Version 1)
Quarter: 2013Q4

REPORT INFORMATION
  Report Type: Spontaneous
  Country: US (occurrence: US)
  Receive Date: 20131003
  Receipt Date: 20131003
  Transmission Date: 20140711
  Serious: No
  Sender: FDA-Public Use
  Company Number: US-AMGEN-USASP2012080711

PATIENT
  Age: 55 Year
  Sex: Male
  Weight: 158.73 kg

DRUGS (1)
  1. ENBREL [Suspect]
     Indication: RHEUMATOID ARTHRITIS
     Dosage: 0.08 ML, QWK
     Route: 058
     Dates: start: 201001

REACTIONS (1)
  - Drug ineffective [Unknown]
